FAERS Safety Report 9997689 (Version 1)
Quarter: 2014Q1

REPORT INFORMATION
  Report Type: Spontaneous
  Country: US (occurrence: None)
  Receive Date: 20140304
  Receipt Date: 20140304
  Transmission Date: 20141002
  Serious: Yes (Hospitalization, Other)
  Sender: FDA-Public Use
  Company Number: RB-49360-2013

PATIENT
  Sex: Male

DRUGS (7)
  1. SUBOXONE [Suspect]
     Indication: PRODUCT USED FOR UNKNOWN INDICATION
     Dosage: (DOSING DETAILS UNKNOWN TRANSPLACENTAL)
     Route: 064
     Dates: start: 2011, end: 20110619
  2. BUPRENORPHINE (NONE) [Suspect]
     Indication: DRUG DEPENDENCE
     Dosage: (16 MG TRANSPLACENTAL)
     Route: 064
     Dates: start: 20110620, end: 20120218
  3. NICOTINE [Suspect]
     Indication: PRODUCT USED FOR UNKNOWN INDICATION
     Dosage: (7 CIGARETTES PER DAY TRANSPLACENTAL)
     Route: 064
     Dates: start: 2011, end: 20120228
  4. CELEXA (UNKNOWN) [Concomitant]
  5. TRAZODONE (UNKNOWN) [Concomitant]
  6. PRENATAL (UNKNOWN) [Concomitant]
  7. VITAMIN B (UNKNOWN) [Concomitant]

REACTIONS (3)
  - Foetal exposure during pregnancy [None]
  - Drug withdrawal syndrome neonatal [None]
  - Exposure during breast feeding [None]
